FAERS Safety Report 7789591-0 (Version None)
Quarter: 2011Q3

REPORT INFORMATION
  Report Type: 
  Country: None (occurrence: None)
  Receive Date: 20110930
  Receipt Date: 20110930
  Transmission Date: 20111222
  Serious: Yes (Hospitalization, Other)
  Sender: FDA-Public Use
  Company Number: FR-PFIZER INC-2011205730

PATIENT
  Age: 23 Year
  Sex: Male

DRUGS (6)
  1. NOZINAN [Suspect]
     Dosage: UNK
     Dates: start: 20110704, end: 20110723
  2. PANTOPRAZOLE [Suspect]
     Indication: PROPHYLAXIS AGAINST GASTROINTESTINAL ULCER
     Dosage: UNK
     Route: 048
     Dates: start: 20110701, end: 20110724
  3. AUGMENTIN '125' [Suspect]
     Dosage: UNK
     Dates: start: 20110720, end: 20110724
  4. FLUCONAZOLE [Concomitant]
     Dosage: UNK
     Dates: start: 20110722, end: 20110724
  5. AUGMENTIN '125' [Suspect]
     Indication: SEPSIS
     Dosage: UNK
     Dates: start: 20110630, end: 20110706
  6. PRIMPERAN TAB [Concomitant]
     Dosage: UNK
     Dates: start: 20110723, end: 20110725

REACTIONS (1)
  - AGRANULOCYTOSIS [None]
